FAERS Safety Report 5376541-X (Version None)
Quarter: 2007Q2

REPORT INFORMATION
  Report Type: 
  Country: None (occurrence: None)
  Receive Date: 20070629
  Receipt Date: 20070622
  Transmission Date: 20071010
  Serious: Yes (Hospitalization, Disabling)
  Sender: FDA-Public Use
  Company Number: SP01282

PATIENT
  Age: 12 Year
  Sex: Female
  Weight: 32 kg

DRUGS (1)
  1. XIFAXAN [Suspect]
     Indication: INTESTINAL OBSTRUCTION
     Dosage: 400 MG (200 MG, 2 IN 1 D), ORAL
     Route: 048
     Dates: start: 20070507, end: 20070522

REACTIONS (7)
  - ATRIAL FIBRILLATION [None]
  - DYSPNOEA [None]
  - EJECTION FRACTION DECREASED [None]
  - MYALGIA [None]
  - MYOCARDITIS [None]
  - OEDEMA PERIPHERAL [None]
  - VOMITING [None]
